FAERS Safety Report 22619192 (Version 2)
Quarter: 2024Q3

REPORT INFORMATION
  Report Type: Spontaneous
  Country: HR (occurrence: HR)
  Receive Date: 20230620
  Receipt Date: 20240711
  Transmission Date: 20241017
  Serious: No
  Sender: PIERRE FABRE MEDICAMENT
  Company Number: HR-002147023-NVSC2023HR036706

PATIENT
  Age: 42 Year
  Sex: Male

DRUGS (5)
  1. PROPRANOLOL [Suspect]
     Active Substance: PROPRANOLOL HYDROCHLORIDE
     Indication: Prophylaxis
     Dosage: UNK
     Route: 065
     Dates: end: 202007
  2. LAMOTRIGINE [Suspect]
     Active Substance: LAMOTRIGINE
     Indication: Prophylaxis
     Dosage: UNK
     Route: 065
     Dates: end: 202007
  3. ERENUMAB [Suspect]
     Active Substance: ERENUMAB
     Indication: Product used for unknown indication
     Dosage: 70 MG, Q4W
     Route: 058
     Dates: start: 202007
  4. ERENUMAB [Suspect]
     Active Substance: ERENUMAB
     Dosage: 140 MG
     Route: 058
  5. TOPIRAMATE [Suspect]
     Active Substance: TOPIRAMATE
     Indication: Prophylaxis
     Dosage: UNK
     Route: 065
     Dates: end: 202007

REACTIONS (2)
  - Headache [Unknown]
  - Therapy partial responder [Unknown]
